FAERS Safety Report 10146487 (Version 1)
Quarter: 2014Q2

REPORT INFORMATION
  Report Type: Spontaneous
  Country: US (occurrence: US)
  Receive Date: 20140501
  Receipt Date: 20140501
  Transmission Date: 20141212
  Serious: No
  Sender: FDA-Public Use
  Company Number: US-009507513-1404USA014902

PATIENT
  Age: 39 Year
  Sex: Male

DRUGS (4)
  1. TIMOPTIC [Suspect]
     Indication: PYOGENIC GRANULOMA
     Dosage: 1 IN 1 DAY
     Route: 047
  2. ALDARA [Suspect]
     Indication: PYOGENIC GRANULOMA
     Dosage: BEDTIME
     Route: 061
  3. CLINDAMYCIN [Suspect]
     Indication: PYOGENIC GRANULOMA
     Dosage: 2 DF, QD
     Route: 061
  4. DOXYCYCLINE [Suspect]
     Indication: PYOGENIC GRANULOMA
     Dosage: 100 MG, BID
     Route: 048

REACTIONS (2)
  - Application site haemorrhage [Unknown]
  - Application site pain [Unknown]
